FAERS Safety Report 11096620 (Version 1)
Quarter: 2015Q2

REPORT INFORMATION
  Report Type: Spontaneous
  Country: IS (occurrence: IS)
  Receive Date: 20150507
  Receipt Date: 20150507
  Transmission Date: 20150821
  Serious: Yes (Other)
  Sender: FDA-Public Use
  Company Number: IS-BAYER-2015-182910

PATIENT
  Sex: Female

DRUGS (1)
  1. ACETYLSALICYLIC ACID({=100 MG) [Suspect]
     Active Substance: ASPIRIN

REACTIONS (3)
  - Foetal growth restriction [None]
  - Maternal exposure during pregnancy [None]
  - Premature labour [None]
